FAERS Safety Report 4561615-3 (Version None)
Quarter: 2005Q1

REPORT INFORMATION
  Report Type: 
  Country: None (occurrence: None)
  Receive Date: 20050126
  Receipt Date: 20050124
  Transmission Date: 20050727
  Serious: Yes (Hospitalization)
  Sender: FDA-Public Use
  Company Number: US-GLAXOSMITHKLINE-A0541960A

PATIENT
  Age: 11 Year
  Sex: Female

DRUGS (2)
  1. STELAZINE [Suspect]
     Dosage: 12MG PER DAY
     Route: 048
     Dates: start: 19910301, end: 19910101
  2. LITHIUM [Concomitant]
     Indication: DRUG USE FOR UNKNOWN INDICATION

REACTIONS (1)
  - CEREBRAL DISORDER [None]
